FAERS Safety Report 10423791 (Version 1)
Quarter: 2014Q3

REPORT INFORMATION
  Report Type: Spontaneous
  Country: US (occurrence: None)
  Receive Date: 20140722
  Receipt Date: 20140722
  Transmission Date: 20150326
  Serious: No
  Sender: FDA-Public Use
  Company Number: 163-10004-14051290

PATIENT
  Age: 56 Year
  Sex: Female
  Weight: 74.39 kg

DRUGS (3)
  1. OTEZLA [Suspect]
     Active Substance: APREMILAST
     Indication: PSORIATIC ARTHROPATHY
     Route: 048
     Dates: start: 20140428
  2. MULTIVITAMINS [Concomitant]
     Active Substance: VITAMINS
  3. ADVIL [Concomitant]
     Active Substance: IBUPROFEN

REACTIONS (2)
  - Chronic sinusitis [None]
  - Vomiting [None]

NARRATIVE: CASE EVENT DATE: 20140502
